FAERS Safety Report 9861656 (Version 2)
Quarter: 2014Q1

REPORT INFORMATION
  Report Type: Report from Study
  Country: US (occurrence: US)
  Receive Date: 20140203
  Receipt Date: 20140203
  Transmission Date: 20141002
  Serious: Yes (Hospitalization)
  Sender: FDA-Public Use
  Company Number: US-MERCK-1401USA013190

PATIENT
  Age: 35 Year
  Sex: Female
  Weight: 75.6 kg

DRUGS (3)
  1. VORINOSTAT [Suspect]
     Indication: ACUTE MYELOID LEUKAEMIA
     Dosage: 100 MG, BID BEGINNING ON DAY -10 THROUGH 100 CYCLE 180 DAYS
     Route: 048
     Dates: start: 20131124, end: 20140126
  2. METHOTREXATE [Suspect]
     Indication: ACUTE MYELOID LEUKAEMIA
     Dosage: 5 MG/M2, ON DAYS 1,3,6 AND 11 CYCLE 180 DAYS
     Route: 042
     Dates: start: 20131124, end: 20131216
  3. TACROLIMUS [Suspect]
     Indication: ACUTE MYELOID LEUKAEMIA
     Dosage: 2 MG ;0.03 MG/KG IV BEGINNING ON DAY -3 OR 0.045 MG/KG/ PO BID BEGINNING ON DAY -3
     Route: 042
     Dates: start: 20131201, end: 20140126

REACTIONS (1)
  - Sinus tachycardia [Recovered/Resolved]
